FAERS Safety Report 22685365 (Version 3)
Quarter: 2023Q4

REPORT INFORMATION
  Report Type: Spontaneous
  Country: US (occurrence: US)
  Receive Date: 20230710
  Receipt Date: 20231122
  Transmission Date: 20240110
  Serious: No
  Sender: FDA-Public Use
  Company Number: US-BRISTOL-MYERS SQUIBB COMPANY-2023-096225

PATIENT
  Age: 56 Year
  Sex: Female

DRUGS (4)
  1. ZEPOSIA [Suspect]
     Active Substance: OZANIMOD HYDROCHLORIDE
     Indication: Multiple sclerosis
     Dosage: 4 DAYS
     Route: 048
     Dates: start: 202305
  2. ZEPOSIA [Suspect]
     Active Substance: OZANIMOD HYDROCHLORIDE
     Dosage: 3DAYS
     Route: 048
  3. ZEPOSIA [Suspect]
     Active Substance: OZANIMOD HYDROCHLORIDE
     Route: 048
     Dates: start: 202305
  4. ZEPOSIA [Suspect]
     Active Substance: OZANIMOD HYDROCHLORIDE
     Route: 048
     Dates: start: 202305

REACTIONS (12)
  - Multiple sclerosis relapse [Unknown]
  - Amnesia [Unknown]
  - Contusion [Unknown]
  - Fatigue [Unknown]
  - Hypoaesthesia [Unknown]
  - Drug ineffective [Unknown]
  - Stress [Unknown]
  - Brain fog [Unknown]
  - Memory impairment [Unknown]
  - Fall [Unknown]
  - Cognitive disorder [Unknown]
  - Confusional state [Unknown]
